FAERS Safety Report 6643898-9 (Version None)
Quarter: 2010Q1

REPORT INFORMATION
  Report Type: 
  Country: None (occurrence: None)
  Receive Date: 20100317
  Receipt Date: 20100308
  Transmission Date: 20100710
  Serious: Yes (Disabling)
  Sender: FDA-Public Use
  Company Number: 530140

PATIENT
  Age: 81 Year
  Sex: Male

DRUGS (1)
  1. VANCOMYCIN HYDROCHLORIDE [Suspect]
     Indication: ANTIBIOTIC THERAPY

REACTIONS (2)
  - LACTOBACILLUS INFECTION [None]
  - LEG AMPUTATION [None]
